FAERS Safety Report 16993105 (Version 3)
Quarter: 2020Q2

REPORT INFORMATION
  Report Type: Spontaneous
  Country: GB (occurrence: GB)
  Receive Date: 20191105
  Receipt Date: 20200406
  Transmission Date: 20200713
  Serious: Yes (Hospitalization)
  Sender: FDA-Public Use
  Company Number: GB-ACCORD-159637

PATIENT
  Age: 57 Year
  Sex: Female
  Weight: 58.5 kg

DRUGS (2)
  1. GEMCITABINE/GEMCITABINE HYDROCHLORIDE [Suspect]
     Active Substance: GEMCITABINE\GEMCITABINE HYDROCHLORIDE
     Indication: BRAIN NEOPLASM
     Dosage: STRENGTH: 1000 MG?DOSE: 1000 MILLIGRAM/SQ. METER
     Route: 042
     Dates: start: 20190912, end: 20190912
  2. CISPLATIN. [Suspect]
     Active Substance: CISPLATIN
     Indication: BRAIN NEOPLASM
     Dosage: STRENGTH: 39 MG?DOSE: 30 MG/M2
     Route: 042
     Dates: start: 20190912, end: 20190912

REACTIONS (3)
  - Off label use [Unknown]
  - Diarrhoea [Recovering/Resolving]
  - Pyrexia [Recovered/Resolved]

NARRATIVE: CASE EVENT DATE: 20190915
